FAERS Safety Report 9632258 (Version 1)
Quarter: 2013Q4

REPORT INFORMATION
  Report Type: Report from Study
  Country: CA (occurrence: CA)
  Receive Date: 20131018
  Receipt Date: 20131018
  Transmission Date: 20140711
  Serious: Yes (Other)
  Sender: FDA-Public Use
  Company Number: CA-JNJFOC-20131006799

PATIENT
  Sex: Male
  Weight: 81.19 kg

DRUGS (2)
  1. STELARA [Suspect]
     Indication: PSORIASIS
     Route: 058
     Dates: start: 200903
  2. STELARA [Suspect]
     Indication: PSORIASIS
     Dosage: IN SEP (YEAR UNSPECIFIED)
     Route: 058

REACTIONS (1)
  - Psoriatic arthropathy [Unknown]
